FAERS Safety Report 4719694-6 (Version None)
Quarter: 2005Q3

REPORT INFORMATION
  Report Type: 
  Country: None (occurrence: None)
  Receive Date: 20050721
  Receipt Date: 20040621
  Transmission Date: 20060218
  Serious: Yes (Other)
  Sender: FDA-Public Use
  Company Number: US-GLAXOSMITHKLINE-A0515373A

PATIENT
  Age: 76 Year
  Sex: Female

DRUGS (3)
  1. AVANDIA [Suspect]
     Dosage: 8MG PER DAY
     Route: 048
  2. HYDROCHLOROTHIAZIDE [Concomitant]
  3. DIOVAN [Concomitant]

REACTIONS (1)
  - HYPOGLYCAEMIA [None]
